FAERS Safety Report 8559821 (Version 2)
Quarter: 2013Q2

REPORT INFORMATION
  Report Type: Spontaneous
  Country: US (occurrence: US)
  Receive Date: 20120514
  Receipt Date: 20130618
  Transmission Date: 20140414
  Serious: Yes (Death, Hospitalization)
  Sender: FDA-Public Use
  Company Number: US-US-EMD SERONO, INC.-7130968

PATIENT
  Age: 48 Year
  Sex: Male
  Weight: 79 kg

DRUGS (2)
  1. REBIF [Suspect]
     Indication: MULTIPLE SCLEROSIS
     Route: 058
     Dates: start: 20120315, end: 20130517
  2. INSULIN                            /00646001/ [Concomitant]
     Indication: PRODUCT USED FOR UNKNOWN INDICATION
     Dates: end: 20130517

REACTIONS (5)
  - Multiple sclerosis [Fatal]
  - Vomiting [Fatal]
  - Nausea [Fatal]
  - Diabetes mellitus inadequate control [Fatal]
  - Increased upper airway secretion [Not Recovered/Not Resolved]
